FAERS Safety Report 4959775-5 (Version None)
Quarter: 2006Q1

REPORT INFORMATION
  Report Type: 
  Country: None (occurrence: None)
  Receive Date: 20060331
  Receipt Date: 20060322
  Transmission Date: 20060701
  Serious: Yes (Death, Hospitalization)
  Sender: FDA-Public Use
  Company Number: IT-BRISTOL-MYERS SQUIBB COMPANY-13329206

PATIENT
  Age: 85 Year
  Sex: Male

DRUGS (14)
  1. ENDOXAN [Suspect]
     Indication: FOLLICLE CENTRE LYMPHOMA, FOLLICULAR GRADE I, II, III
     Route: 042
     Dates: start: 20051124, end: 20060105
  2. VINCRISTINE [Suspect]
     Indication: FOLLICLE CENTRE LYMPHOMA, FOLLICULAR GRADE I, II, III
     Route: 042
     Dates: start: 20051125, end: 20051215
  3. METHYLPREDNISOLONE [Suspect]
     Indication: FOLLICLE CENTRE LYMPHOMA, FOLLICULAR GRADE I, II, III
     Route: 042
     Dates: start: 20051124, end: 20060105
  4. PREDNISONE [Suspect]
     Indication: FOLLICLE CENTRE LYMPHOMA, FOLLICULAR GRADE I, II, III
     Route: 048
     Dates: start: 20051124, end: 20060105
  5. VELBE [Suspect]
     Indication: FOLLICLE CENTRE LYMPHOMA, FOLLICULAR GRADE I, II, III
     Dates: start: 20060105, end: 20060105
  6. CORDARONE [Concomitant]
  7. EUTIROX [Concomitant]
  8. DILATREND [Concomitant]
  9. LASIX [Concomitant]
  10. LANOXIN [Concomitant]
     Dosage: DOSAGE FORM = TABLET
  11. ACCUPRIN [Concomitant]
  12. ASPIRIN [Concomitant]
     Dosage: DOSAGE FORM = TABLET
  13. TORVAST [Concomitant]
  14. POTASSIUM [Concomitant]

REACTIONS (2)
  - INTERSTITIAL LUNG DISEASE [None]
  - RESPIRATORY FAILURE [None]
